FAERS Safety Report 5546374-X (Version None)
Quarter: 2007Q4

REPORT INFORMATION
  Report Type: 
  Country: None (occurrence: None)
  Receive Date: 20071211
  Receipt Date: 20071204
  Transmission Date: 20080405
  Serious: Yes (Death)
  Sender: FDA-Public Use
  Company Number: ES-GENENTECH-252366

PATIENT

DRUGS (2)
  1. ACTIVASE [Suspect]
     Indication: CEREBROVASCULAR ACCIDENT
     Dosage: 0.9 MG/KG, UNK
     Route: 042
  2. LEVOVIST [Suspect]
     Indication: CEREBROVASCULAR ACCIDENT
     Dosage: 400 MG/DL, X3
     Route: 040

REACTIONS (1)
  - DEATH [None]
